FAERS Safety Report 8902705 (Version 1)
Quarter: 2012Q4

REPORT INFORMATION
  Report Type: Report from Study
  Country: GR (occurrence: GR)
  Receive Date: 20121112
  Receipt Date: 20121112
  Transmission Date: 20130627
  Serious: Yes (Other)
  Sender: FDA-Public Use
  Company Number: GR-BAYER-2012-117778

PATIENT
  Age: 83 Year
  Sex: Male

DRUGS (7)
  1. METFORMIN HYDROCHLORIDE [Suspect]
  2. TICLOPIDINE [Suspect]
  3. NIFEDIPINE [Suspect]
  4. GLYCERYL TRINITRATE [Suspect]
  5. FUROSEMIDE [Suspect]
  6. MEDIGOXIN [Suspect]
  7. HYDROCHLOROTHIAZIDE W/QUINAPRIL [Suspect]

REACTIONS (1)
  - Pemphigoid [None]
